FAERS Safety Report 6465972-2 (Version None)
Quarter: 2009Q4

REPORT INFORMATION
  Report Type: 
  Country: None (occurrence: None)
  Receive Date: 20091201
  Receipt Date: 20091201
  Transmission Date: 20100525
  Serious: No
  Sender: FDA-Public Use
  Company Number: None

PATIENT
  Sex: Male

DRUGS (3)
  1. CLONIDINE [Suspect]
     Indication: ASPERGER'S DISORDER
     Dosage: .2 MG 1/WK PATCH
  2. CLONIDINE [Suspect]
     Indication: ATTENTION DEFICIT/HYPERACTIVITY DISORDER
     Dosage: .2 MG 1/WK PATCH
  3. CLONIDINE [Suspect]
     Indication: BIPOLAR DISORDER
     Dosage: .2 MG 1/WK PATCH

REACTIONS (4)
  - ABNORMAL BEHAVIOUR [None]
  - AGGRESSION [None]
  - CONDITION AGGRAVATED [None]
  - PRODUCT SUBSTITUTION ISSUE [None]
